FAERS Safety Report 14326792 (Version 1)
Quarter: 2017Q4

REPORT INFORMATION
  Report Type: Spontaneous
  Country: FR (occurrence: FR)
  Receive Date: 20171227
  Receipt Date: 20171227
  Transmission Date: 20180321
  Serious: Yes (Other)
  Sender: FDA-Public Use
  Company Number: FR-009507513-1712FRA012748

PATIENT
  Sex: Female

DRUGS (2)
  1. PUREGON [FOLLITROPIN BETA] [Suspect]
     Active Substance: FOLLITROPIN
  2. ELONVA [Suspect]
     Active Substance: CORIFOLLITROPIN ALFA

REACTIONS (1)
  - Angioedema [Unknown]
